FAERS Safety Report 4381219-5 (Version None)
Quarter: 2004Q2

REPORT INFORMATION
  Report Type: 
  Country: None (occurrence: None)
  Receive Date: 20040616
  Receipt Date: 20040608
  Transmission Date: 20050107
  Serious: Yes (Death, Other)
  Sender: FDA-Public Use
  Company Number: 200412886BCC

PATIENT
  Age: 78 Year
  Sex: Female

DRUGS (1)
  1. ASPIRIN [Suspect]
     Indication: MALAISE
     Dosage: ORAL
     Route: 048
     Dates: end: 20040515

REACTIONS (2)
  - CIRCULATORY COLLAPSE [None]
  - FALL [None]
